FAERS Safety Report 5203497-2 (Version None)
Quarter: 2007Q1

REPORT INFORMATION
  Report Type: 
  Country: None (occurrence: None)
  Receive Date: 20070110
  Receipt Date: 20070103
  Transmission Date: 20070707
  Serious: Yes (Death, Life-Threatening)
  Sender: FDA-Public Use
  Company Number: CH-AVENTIS-200710068GDDC

PATIENT
  Age: 68 Year
  Sex: Male

DRUGS (8)
  1. DOCETAXEL [Suspect]
     Indication: OESOPHAGEAL CARCINOMA
     Route: 042
     Dates: start: 20061206, end: 20061227
  2. CISPLATIN [Suspect]
     Indication: OESOPHAGEAL CARCINOMA
     Route: 042
     Dates: start: 20061206, end: 20061227
  3. RADIOTHERAPY [Suspect]
     Indication: OESOPHAGEAL CARCINOMA
     Dosage: DOSE: 23.4 CGY
     Dates: start: 20061206, end: 20061228
  4. PANTOPRAZOLE SODIUM [Concomitant]
     Route: 048
     Dates: start: 20050101, end: 20070101
  5. ACIDUM ACETYLOSALICYLICUM [Concomitant]
     Route: 048
     Dates: end: 20070101
  6. LEVODOPA + BENSERAZIDE [Concomitant]
     Route: 048
     Dates: end: 20070101
  7. PRAVASTATIN-NATRIUM [Concomitant]
     Route: 048
     Dates: end: 20070101
  8. MAGNESIUM LACTATE [Concomitant]
     Route: 048
     Dates: end: 20070101

REACTIONS (5)
  - HEPATIC FUNCTION ABNORMAL [None]
  - LEUKOPENIA [None]
  - MULTI-ORGAN FAILURE [None]
  - RENAL FAILURE [None]
  - THROMBOCYTOPENIA [None]
